FAERS Safety Report 9697425 (Version 3)
Quarter: 2013Q4

REPORT INFORMATION
  Report Type: Spontaneous
  Country: US (occurrence: US)
  Receive Date: 20131120
  Receipt Date: 20131212
  Transmission Date: 20140711
  Serious: Yes (Death)
  Sender: FDA-Public Use
  Company Number: US-009507513-1311USA005665

PATIENT
  Age: 64 Year
  Sex: Female

DRUGS (12)
  1. MAXALT [Suspect]
     Dosage: 10 MG, PRN, 1 TABLET AT ONSET OF MIGRAINE
     Route: 048
  2. PREVACID [Concomitant]
  3. ZOCOR [Concomitant]
     Route: 048
  4. ENALAPRIL MALEATE [Concomitant]
     Route: 048
  5. NITROSTAT [Concomitant]
  6. DIGOXIN [Concomitant]
  7. FENOFIBRATE [Concomitant]
  8. KLONOPIN [Concomitant]
  9. LANTUS [Concomitant]
  10. MELOXICAM [Concomitant]
  11. CVS NON-ASPRIN ALLERGY SINUS [Concomitant]
  12. AMITRIPTYLINE HYDROCHLORIDE [Concomitant]
     Route: 048

REACTIONS (1)
  - Death [Fatal]
